FAERS Safety Report 10135945 (Version 2)
Quarter: 2014Q2

REPORT INFORMATION
  Report Type: Report from Study
  Country: US (occurrence: US)
  Receive Date: 20140429
  Receipt Date: 20140429
  Transmission Date: 20141212
  Serious: Yes (Other)
  Sender: FDA-Public Use
  Company Number: US-ROCHE-1373414

PATIENT
  Age: 63 Year
  Sex: Male
  Weight: 248 kg

DRUGS (9)
  1. PEGASYS [Suspect]
     Indication: HEPATITIS C
     Route: 058
     Dates: start: 20140310
  2. PEGASYS [Suspect]
     Route: 058
  3. RIBAVIRIN [Suspect]
     Indication: HEPATITIS C
     Route: 048
     Dates: start: 20140310
  4. RIBAVIRIN [Suspect]
     Dosage: 400 MG Q AM/ 200 Q PM
     Route: 048
  5. SOVALDI [Suspect]
     Indication: HEPATITIS C
     Route: 048
     Dates: start: 20140310
  6. DIAZEPAM [Concomitant]
     Indication: DEPRESSION
     Route: 048
  7. LOSARTAN/HCTZ [Concomitant]
     Indication: HYPERTENSION
     Dosage: DOSE: 100/12.5
     Route: 048
  8. LENTE INSULIN [Concomitant]
     Indication: DIABETES MELLITUS
     Route: 058
  9. PAXIL [Concomitant]
     Indication: DEPRESSION
     Route: 048

REACTIONS (4)
  - Renal failure acute [Recovered/Resolved]
  - Platelet count decreased [Not Recovered/Not Resolved]
  - Blood creatinine increased [Recovering/Resolving]
  - Depression [Unknown]
